FAERS Safety Report 21162894 (Version 1)
Quarter: 2022Q3

REPORT INFORMATION
  Report Type: Spontaneous
  Country: RU (occurrence: RU)
  Receive Date: 20220802
  Receipt Date: 20220802
  Transmission Date: 20221027
  Serious: Yes (Other)
  Sender: FDA-Public Use
  Company Number: RU-SA-2022SA308560

PATIENT
  Age: 55 Year
  Sex: Male
  Weight: 85 kg

DRUGS (7)
  1. PLAVIX [Suspect]
     Active Substance: CLOPIDOGREL BISULFATE
     Indication: Coronary angioplasty
     Dosage: 75 MG, QD
     Route: 048
     Dates: start: 20220719, end: 20220725
  2. ASPIRIN [Concomitant]
     Active Substance: ASPIRIN
     Dosage: 100 MG
     Route: 048
     Dates: start: 20220715
  3. METOPROLOL VERTEX [Concomitant]
     Dosage: 25 MG
     Route: 048
     Dates: start: 20220715
  4. AMLODIPINE [Concomitant]
     Active Substance: AMLODIPINE BESYLATE
     Dosage: 2.5 MG
     Route: 048
     Dates: start: 20220715
  5. ATORVASTATIN [Concomitant]
     Active Substance: ATORVASTATIN
     Dosage: 40 MG
     Route: 048
     Dates: start: 20220715
  6. ENOXAPARIN SODIUM [Concomitant]
     Active Substance: ENOXAPARIN SODIUM
     Dosage: 0.8 ML
     Route: 058
     Dates: start: 20220715
  7. OMEPRAZOLE [Concomitant]
     Active Substance: OMEPRAZOLE
     Dosage: 20 MG
     Route: 048
     Dates: start: 20220715

REACTIONS (1)
  - Dermatitis allergic [Recovering/Resolving]
